FAERS Safety Report 13740602 (Version 1)
Quarter: 2017Q3

REPORT INFORMATION
  Report Type: Spontaneous
  Country: US (occurrence: US)
  Receive Date: 20170710
  Receipt Date: 20170710
  Transmission Date: 20171127
  Serious: Yes (Disabling)
  Sender: FDA-Public Use
  Company Number: None

PATIENT
  Age: 30 Year
  Sex: Female
  Weight: 126 kg

DRUGS (7)
  1. LICORICE TEA [Concomitant]
  2. WELLBUTRIN [Concomitant]
     Active Substance: BUPROPION HYDROCHLORIDE
  3. PEPPERMINT TEA [Concomitant]
  4. PAXIL [Suspect]
     Active Substance: PAROXETINE HYDROCHLORIDE
     Indication: DEPRESSION
     Dosage: ?          OTHER STRENGTH:MG;QUANTITY:90 TABLET(S);?
     Route: 048
  5. CURCUMIN [Concomitant]
     Active Substance: CURCUMIN
  6. MAGNESIUM [Concomitant]
     Active Substance: MAGNESIUM
  7. MULTI VITAMIN [Concomitant]
     Active Substance: VITAMINS

REACTIONS (2)
  - Gastric bypass [None]
  - Weight increased [None]
